FAERS Safety Report 21461684 (Version 1)
Quarter: 2022Q4

REPORT INFORMATION
  Report Type: Report from Study
  Country: US (occurrence: US)
  Receive Date: 20221015
  Receipt Date: 20221015
  Transmission Date: 20230113
  Serious: Yes (Other)
  Sender: FDA-Public Use
  Company Number: US-ABBVIE-4159228

PATIENT
  Sex: Female

DRUGS (3)
  1. HUMIRA [Suspect]
     Active Substance: ADALIMUMAB
     Indication: Psoriatic arthropathy
     Route: 058
  2. Pfizer/BioNTech [Concomitant]
     Indication: COVID-19 immunisation
     Dosage: 2ND DOSE
     Dates: start: 20210930, end: 20210930
  3. Pfizer/BioNTech [Concomitant]
     Indication: COVID-19 immunisation
     Dosage: 1ST DOSE
     Dates: start: 202106, end: 202106

REACTIONS (3)
  - COVID-19 [Unknown]
  - Seizure [Unknown]
  - COVID-19 [Unknown]
